FAERS Safety Report 6669401-5 (Version None)
Quarter: 2010Q2

REPORT INFORMATION
  Report Type: 
  Country: None (occurrence: None)
  Receive Date: 20100406
  Receipt Date: 20100326
  Transmission Date: 20101027
  Serious: Yes (Hospitalization, Other)
  Sender: FDA-Public Use
  Company Number: IT-GENZYME-CLOF-1000850

PATIENT
  Sex: Male

DRUGS (6)
  1. EVOLTRA [Suspect]
     Indication: ACUTE LYMPHOCYTIC LEUKAEMIA
     Dosage: 2000 MG, QDX5
     Route: 042
     Dates: start: 20100112, end: 20100116
  2. ARACYTIN [Suspect]
     Indication: ACUTE LYMPHOCYTIC LEUKAEMIA
     Dosage: 80 MG, QDX5
     Route: 042
     Dates: start: 20100112, end: 20100116
  3. VOLTAREN [Concomitant]
     Indication: HYPERPYREXIA
     Dosage: 20 MG, QD
     Route: 042
     Dates: start: 20100128, end: 20100130
  4. METHOTREXATE [Concomitant]
     Indication: DRUG USE FOR UNKNOWN INDICATION
     Dosage: 12 MG, ONCE
     Route: 037
     Dates: start: 20100112, end: 20100112
  5. URBASON SOLUBILE [Concomitant]
     Indication: DRUG USE FOR UNKNOWN INDICATION
     Dosage: 40 MG, ONCE
     Route: 037
     Dates: start: 20100112, end: 20100112
  6. ARACYTIN [Concomitant]
     Indication: DRUG USE FOR UNKNOWN INDICATION
     Dosage: 50 MG, ONCE
     Route: 037
     Dates: start: 20100112, end: 20100112

REACTIONS (5)
  - ANURIA [None]
  - BACTERAEMIA [None]
  - BACTERIAL SEPSIS [None]
  - BONE MARROW FAILURE [None]
  - PYREXIA [None]
